FAERS Safety Report 4408467-X (Version None)
Quarter: 2004Q3

REPORT INFORMATION
  Report Type: 
  Country: None (occurrence: None)
  Receive Date: 20040723
  Receipt Date: 20040715
  Transmission Date: 20050211
  Serious: Yes (Hospitalization)
  Sender: FDA-Public Use
  Company Number: GBWYE801803JUN04

PATIENT
  Age: 56 Year
  Sex: Male

DRUGS (15)
  1. RAPAMUNE [Suspect]
     Indication: RENAL TRANSPLANT
     Dosage: 2-3 MG ON ALTERNATE DAYS ORAL
     Route: 048
     Dates: start: 20021101, end: 20040325
  2. RAPAMUNE [Suspect]
     Indication: RENAL TRANSPLANT
     Dosage: 2-3 MG ON ALTERNATE DAYS ORAL
     Route: 048
     Dates: start: 20040326, end: 20040526
  3. RAPAMUNE [Suspect]
     Indication: RENAL TRANSPLANT
     Dosage: 2-3 MG ON ALTERNATE DAYS ORAL
     Route: 048
     Dates: start: 20040527
  4. ATORVASTATIN (ATORVASTATIN) [Concomitant]
  5. ATENOLOL [Concomitant]
  6. FUROSEMIDE [Concomitant]
  7. ISOSORBIDE MONONITRATE [Concomitant]
  8. NIFEDIPINE [Concomitant]
  9. ASPIRIN [Concomitant]
  10. MAXEPA (CITRIC ACID/FATTY ACIDS NOS/GLUCOSE/INSULIN/INSULIN HUMAN INJE [Concomitant]
  11. LANSOPRAZOLE 9LANSOPRAZOLE) [Concomitant]
  12. LANTUS [Concomitant]
  13. INSULIN [Concomitant]
  14. ARANESP [Concomitant]
  15. AZATHIOPRINE [Concomitant]

REACTIONS (5)
  - COMPLICATIONS OF TRANSPLANTED KIDNEY [None]
  - PANCYTOPENIA [None]
  - REFUSAL OF TREATMENT BY PATIENT [None]
  - RENAL FAILURE [None]
  - TRANSPLANT FAILURE [None]
